FAERS Safety Report 8018742-8 (Version None)
Quarter: 2012Q1

REPORT INFORMATION
  Report Type: 
  Country: None (occurrence: None)
  Receive Date: 20120103
  Receipt Date: 20120103
  Transmission Date: 20120608
  Serious: Yes (Life-Threatening, Hospitalization)
  Sender: FDA-Public Use
  Company Number: None

PATIENT
  Age: 65 Year
  Sex: Female
  Weight: 67 kg

DRUGS (1)
  1. ENOXAPARIN [Suspect]
     Indication: ACUTE CORONARY SYNDROME
     Dates: start: 20111221, end: 20111224

REACTIONS (3)
  - TACHYCARDIA [None]
  - HAEMOGLOBIN DECREASED [None]
  - HYPOTENSION [None]
